FAERS Safety Report 9160754 (Version 1)
Quarter: 2013Q1

REPORT INFORMATION
  Report Type: Spontaneous
  Country: US (occurrence: US)
  Receive Date: 20130313
  Receipt Date: 20130313
  Transmission Date: 20140127
  Serious: Yes (Hospitalization, Other)
  Sender: FDA-Public Use
  Company Number: US-AMGEN-USASP2013015491

PATIENT
  Sex: Male
  Weight: 77.1 kg

DRUGS (11)
  1. ENBREL [Suspect]
     Indication: PRODUCT USED FOR UNKNOWN INDICATION
     Dosage: 50 MG, QWK
     Route: 058
  2. METFORMIN [Concomitant]
     Dosage: 500 MG, UNK
  3. SIMVASTATIN [Concomitant]
     Dosage: 40 MG, UNK
  4. FOLIC ACID [Concomitant]
     Dosage: 1 MG, UNK
  5. GABAPENTIN [Concomitant]
     Dosage: 100 MG, UNK
  6. METOPROLOL [Concomitant]
     Dosage: 25 MG, ER
  7. CALCIUM [Concomitant]
     Dosage: 500 UNK, UNK
  8. ASPIRIN FREE BAYER SELECT HEAD + CHEST COLD [Concomitant]
     Dosage: 325 MG, UNK
  9. CLOPIDOGREL [Concomitant]
     Dosage: 75 MG, UNK
  10. TYLENOL /00020001/ [Concomitant]
     Dosage: 325 MG, UNK
  11. QUETIAPINE [Concomitant]
     Dosage: 25 MG, UNK

REACTIONS (6)
  - Coronary artery stenosis [Unknown]
  - Decreased appetite [Unknown]
  - Weight decreased [Unknown]
  - Pain in extremity [Unknown]
  - Joint stiffness [Unknown]
  - Skin discolouration [Unknown]
